FAERS Safety Report 20950378 (Version 1)
Quarter: 2022Q2

REPORT INFORMATION
  Report Type: Spontaneous
  Country: US (occurrence: None)
  Receive Date: 20220612
  Receipt Date: 20220612
  Transmission Date: 20220721
  Serious: Yes (Other)
  Sender: FDA-Public Use
  Company Number: None

PATIENT
  Age: 29 Year
  Sex: Male
  Weight: 67.5 kg

DRUGS (1)
  1. PAXLOVID [Suspect]
     Active Substance: NIRMATRELVIR\RITONAVIR
     Indication: COVID-19 treatment
     Dates: start: 20220528, end: 20220601

REACTIONS (5)
  - COVID-19 [None]
  - Rebound effect [None]
  - SARS-CoV-2 test positive [None]
  - SARS-CoV-2 test positive [None]
  - Asymptomatic COVID-19 [None]

NARRATIVE: CASE EVENT DATE: 20220610
